FAERS Safety Report 23651318 (Version 1)
Quarter: 2024Q1

REPORT INFORMATION
  Report Type: Spontaneous
  Country: US (occurrence: US)
  Receive Date: 20240320
  Receipt Date: 20240320
  Transmission Date: 20240409
  Serious: No
  Sender: FDA-Public Use
  Company Number: US-LEO Pharma-368725

PATIENT
  Age: 52 Year
  Sex: Male

DRUGS (1)
  1. ADBRY [Suspect]
     Active Substance: TRALOKINUMAB-LDRM
     Indication: Dermatitis atopic
     Dosage: INJECT 300MG (2 PREFILLED SYRINGES) SUBCUTANEOUSLY EVERY OTHER WEEK STARTING ON DAY 15 ROTATING INJE
     Route: 058

REACTIONS (1)
  - Pruritus [Not Recovered/Not Resolved]
